FAERS Safety Report 15468571 (Version 3)
Quarter: 2018Q4

REPORT INFORMATION
  Report Type: Spontaneous
  Country: US (occurrence: US)
  Receive Date: 20181005
  Receipt Date: 20181130
  Transmission Date: 20190204
  Serious: No
  Sender: FDA-Public Use
  Company Number: US-SA-2018SA272816

PATIENT
  Sex: Female

DRUGS (11)
  1. LEVOTHYROXIN [Concomitant]
     Active Substance: LEVOTHYROXINE
     Dosage: UNK
  2. CITALOPRAM [Concomitant]
     Active Substance: CITALOPRAM HYDROBROMIDE
     Dosage: UNK
  3. DULOXETINE HCL [Concomitant]
     Active Substance: DULOXETINE HYDROCHLORIDE
     Dosage: UNK
  4. ILEVRO [Concomitant]
     Active Substance: NEPAFENAC
     Dosage: UNK
  5. PRALUENT [Suspect]
     Active Substance: ALIROCUMAB
     Indication: TYPE IIA HYPERLIPIDAEMIA
     Dosage: 75 MG, QOW
     Route: 058
  6. DUREZOL [Concomitant]
     Active Substance: DIFLUPREDNATE
     Dosage: UNK
  7. VIGAMOX [Concomitant]
     Active Substance: MOXIFLOXACIN HYDROCHLORIDE
     Dosage: UNK
  8. DULOXETINE. [Concomitant]
     Active Substance: DULOXETINE
     Dosage: UNK
  9. ISOSORB MONO [Concomitant]
     Active Substance: ISOSORBIDE MONONITRATE
     Dosage: UNK
  10. ASPIRIN [ACETYLSALICYLIC ACID] [Concomitant]
     Active Substance: ASPIRIN
     Dosage: UNK
  11. ONGLYZA [Concomitant]
     Active Substance: SAXAGLIPTIN HYDROCHLORIDE
     Dosage: UNK

REACTIONS (2)
  - Injection site bruising [Unknown]
  - Myalgia [Not Recovered/Not Resolved]
